FAERS Safety Report 8026208-4 (Version None)
Quarter: 2012Q1

REPORT INFORMATION
  Report Type: 
  Country: None (occurrence: None)
  Receive Date: 20120105
  Receipt Date: 20110304
  Transmission Date: 20120608
  Serious: No
  Sender: FDA-Public Use
  Company Number: US-ABBOTT-11P-163-0709949-00

PATIENT
  Sex: Female
  Weight: 49.94 kg

DRUGS (2)
  1. ALENDRONATE SODIUM [Concomitant]
     Indication: OSTEOPOROSIS
  2. SYNTHROID [Suspect]
     Indication: HYPOTHYROIDISM
     Dates: start: 20060301

REACTIONS (6)
  - LIVER DISORDER [None]
  - ABDOMINAL PAIN UPPER [None]
  - GASTRIC DISORDER [None]
  - COELIAC DISEASE [None]
  - DIARRHOEA [None]
  - FLATULENCE [None]
